FAERS Safety Report 20360213 (Version 1)
Quarter: 2022Q1

REPORT INFORMATION
  Report Type: Spontaneous
  Country: US (occurrence: US)
  Receive Date: 20220121
  Receipt Date: 20220121
  Transmission Date: 20220423
  Serious: Yes (Other)
  Sender: FDA-Public Use
  Company Number: US-JNJFOC-20220129984

PATIENT

DRUGS (3)
  1. IMBRUVICA [Suspect]
     Active Substance: IBRUTINIB
     Indication: Chronic lymphocytic leukaemia
     Route: 048
  2. IMBRUVICA [Suspect]
     Active Substance: IBRUTINIB
     Indication: Mantle cell lymphoma
  3. IMBRUVICA [Suspect]
     Active Substance: IBRUTINIB
     Indication: Non-Hodgkin^s lymphoma

REACTIONS (7)
  - Musculoskeletal toxicity [Unknown]
  - Cytopenia [Unknown]
  - Gastrointestinal toxicity [Unknown]
  - Toxicity to various agents [Unknown]
  - Adverse reaction [Unknown]
  - Fatigue [Unknown]
  - Diarrhoea [Unknown]
